FAERS Safety Report 4379317-5 (Version None)
Quarter: 2004Q2

REPORT INFORMATION
  Report Type: 
  Country: None (occurrence: None)
  Receive Date: 20040617
  Receipt Date: 20040608
  Transmission Date: 20050107
  Serious: Yes (Death, Hospitalization)
  Sender: FDA-Public Use
  Company Number: 200415752GDDC

PATIENT
  Age: 85 Year
  Sex: Male

DRUGS (3)
  1. TELITHROMYCIN [Suspect]
     Indication: PNEUMONIA
     Route: 048
     Dates: start: 20040514, end: 20040517
  2. LASIX [Concomitant]
     Indication: CARDIAC FAILURE CONGESTIVE
     Route: 048
  3. RISPERDAL [Concomitant]
     Route: 048

REACTIONS (6)
  - BODY TEMPERATURE INCREASED [None]
  - CREPITATIONS [None]
  - DEATH [None]
  - DYSPNOEA [None]
  - PNEUMONIA [None]
  - RHONCHI [None]
